FAERS Safety Report 14171457 (Version 2)
Quarter: 2017Q4

REPORT INFORMATION
  Report Type: Spontaneous
  Country: US (occurrence: US)
  Receive Date: 20171108
  Receipt Date: 20171205
  Transmission Date: 20180321
  Serious: No
  Sender: FDA-Public Use
  Company Number: CA-MYLANLABS-2017M1069766

PATIENT
  Age: 66 Year
  Sex: Female
  Weight: 77 kg

DRUGS (2)
  1. LIDOCAINE PATCH [Suspect]
     Active Substance: LIDOCAINE
     Indication: BACK PAIN
     Dosage: 1 DF, UNK
     Route: 062
  2. LIDOCAINE PATCH [Suspect]
     Active Substance: LIDOCAINE
     Indication: NECK PAIN

REACTIONS (3)
  - Application site irritation [Recovered/Resolved]
  - Product quality issue [Not Recovered/Not Resolved]
  - Application site pruritus [None]

NARRATIVE: CASE EVENT DATE: 20171028
